FAERS Safety Report 9370837 (Version 6)
Quarter: 2014Q2

REPORT INFORMATION
  Report Type: Report from Study
  Country: CA (occurrence: CA)
  Receive Date: 20130626
  Receipt Date: 20140404
  Transmission Date: 20141212
  Serious: Yes (Other)
  Sender: FDA-Public Use
  Company Number: CA-GILEAD-2013-0075565

PATIENT
  Age: 32 Year
  Sex: Male
  Weight: 53.7 kg

DRUGS (19)
  1. EMTRICITABINE/TENOFOVIR DISOPROXIL FUMARATE [Suspect]
     Indication: HIV INFECTION
     Dosage: 1 DF, QD
     Route: 048
     Dates: start: 20120315, end: 20130508
  2. MARAVIROC [Suspect]
     Indication: HIV INFECTION
     Dosage: 1 DF, BID
     Route: 048
     Dates: start: 20120315, end: 20130508
  3. RALTEGRAVIR [Suspect]
     Indication: HIV INFECTION
     Dosage: 1 DF, BID
     Route: 048
     Dates: start: 20120315, end: 20130508
  4. LOPINAVIR + RITONAVIR [Suspect]
     Indication: HIV INFECTION
     Dosage: 1 DF, UNK
     Route: 048
     Dates: start: 20120315
  5. ELMIRON [Suspect]
     Indication: CYSTITIS
     Dosage: 100 MG, BID
     Route: 048
     Dates: start: 20120711, end: 20130228
  6. ELMIRON [Suspect]
     Indication: ULCER
     Dosage: 100 MG, BID
     Route: 048
     Dates: start: 20130305, end: 20130325
  7. ELMIRON [Suspect]
     Dosage: 100 MG, BID
     Route: 048
     Dates: start: 20130424, end: 20130527
  8. DETROL [Suspect]
     Indication: PROSTATITIS
     Dosage: 4 MG, QD
     Route: 048
     Dates: start: 20121101, end: 20130325
  9. DETROL [Suspect]
     Indication: CYSTITIS NONINFECTIVE
     Dosage: 4 MG, QD
     Dates: start: 20120516, end: 20120605
  10. ENABLEX                            /01760401/ [Suspect]
     Indication: PROSTATITIS
     Dosage: 7.5 MG, QD
     Dates: start: 20121101, end: 20130201
  11. ENABLEX                            /01760401/ [Suspect]
     Indication: ULCER
     Dosage: 7.5 MG, QD
     Dates: start: 20120516, end: 20120605
  12. TOVIAZ [Suspect]
     Indication: CYSTITIS ULCERATIVE
     Dosage: UNK, QD
     Route: 048
     Dates: start: 20121101, end: 20130115
  13. TOVIAZ [Suspect]
     Indication: ULCER
  14. CYMBALTA [Suspect]
     Indication: CYSTITIS ULCERATIVE
     Dosage: 600 MG, QD
     Route: 048
     Dates: start: 20121101, end: 20130325
  15. WELLBUTRIN [Suspect]
     Indication: PRODUCT USED FOR UNKNOWN INDICATION
     Dosage: 150 MG, QD
     Route: 048
     Dates: start: 20120225, end: 20130313
  16. FLOXIN                             /00239102/ [Concomitant]
     Indication: PROSTATITIS
     Dosage: UNK
     Dates: start: 20120718, end: 20120808
  17. GABAPENTIN [Concomitant]
     Indication: CYSTITIS INTERSTITIAL
     Dosage: UNK
     Dates: start: 20120830, end: 20121210
  18. OXYCOCET [Concomitant]
     Indication: FISTULA
     Dosage: UNK
     Dates: start: 20120327
  19. ATIVAN [Concomitant]
     Dosage: UNK
     Dates: start: 20120225, end: 20130308

REACTIONS (2)
  - Neutropenia [Recovered/Resolved]
  - Neutropenia [Recovered/Resolved]
